FAERS Safety Report 8210349-2 (Version None)
Quarter: 2012Q1

REPORT INFORMATION
  Report Type: 
  Country: None (occurrence: None)
  Receive Date: 20120314
  Receipt Date: 20110317
  Transmission Date: 20120608
  Serious: No
  Sender: FDA-Public Use
  Company Number: US-ASTRAZENECA-2011SE15373

PATIENT
  Age: 52 Year
  Sex: Female

DRUGS (2)
  1. TOPROL-XL [Suspect]
     Route: 048
  2. ATACAND [Concomitant]

REACTIONS (2)
  - HYPERTENSION [None]
  - DRUG DOSE OMISSION [None]
